FAERS Safety Report 14645837 (Version 2)
Quarter: 2018Q2

REPORT INFORMATION
  Report Type: Report from Study
  Country: None (occurrence: CA)
  Receive Date: 20180316
  Receipt Date: 20180402
  Transmission Date: 20180711
  Serious: Yes (Other)
  Sender: FDA-Public Use
  Company Number: CA-ABBVIE-18K-028-2285828-00

PATIENT
  Age: 36 Year
  Sex: Female

DRUGS (5)
  1. INFLECTRA [Suspect]
     Active Substance: INFLIXIMAB-DYYB
     Indication: PRODUCT USED FOR UNKNOWN INDICATION
     Route: 065
  2. STELARA [Suspect]
     Active Substance: USTEKINUMAB
     Indication: PRODUCT USED FOR UNKNOWN INDICATION
     Route: 065
  3. HUMIRA [Suspect]
     Active Substance: ADALIMUMAB
     Indication: CROHN^S DISEASE
     Route: 058
     Dates: start: 20091230, end: 2016
  4. HUMIRA [Suspect]
     Active Substance: ADALIMUMAB
     Dosage: RESUMED
     Route: 058
     Dates: start: 201802
  5. HUMIRA [Suspect]
     Active Substance: ADALIMUMAB
     Dosage: DOSE INCREASED DUE TO STILL HAVING INFLAMMATION
     Route: 058
     Dates: start: 201802

REACTIONS (6)
  - Postoperative abscess [Recovering/Resolving]
  - Crohn^s disease [Not Recovered/Not Resolved]
  - Treatment failure [Unknown]
  - Intestinal obstruction [Recovered/Resolved]
  - Post procedural diarrhoea [Not Recovered/Not Resolved]
  - Post procedural infection [Recovering/Resolving]

NARRATIVE: CASE EVENT DATE: 201711
